FAERS Safety Report 7496976-9 (Version None)
Quarter: 2011Q2

REPORT INFORMATION
  Report Type: 
  Country: None (occurrence: None)
  Receive Date: 20110523
  Receipt Date: 20110519
  Transmission Date: 20111010
  Serious: Yes (Life-Threatening)
  Sender: FDA-Public Use
  Company Number: US-B.I. PHARMACEUTICALS,INC./RIDGEFIELD-2011-BP-09271BP

PATIENT
  Sex: Female

DRUGS (14)
  1. LUMIGAN [Concomitant]
  2. WARFARIN SODIUM [Concomitant]
  3. PACERONE [Concomitant]
  4. PRADAXA [Suspect]
     Dosage: 300 MG
     Route: 048
  5. TRAZODONE HCL [Concomitant]
  6. DIGOXIN [Concomitant]
  7. REVINA OIN [Concomitant]
  8. PRAVASTATIN [Concomitant]
  9. METOPROLOL TART [Concomitant]
  10. POT CHLORIDE [Concomitant]
  11. FUROSEMIDE [Concomitant]
  12. BRIMONIDINE [Concomitant]
  13. ALPRAZOLAM [Concomitant]
  14. LATANOPROST [Concomitant]

REACTIONS (1)
  - CEREBROVASCULAR ACCIDENT [None]
